FAERS Safety Report 10540677 (Version 3)
Quarter: 2015Q2

REPORT INFORMATION
  Report Type: Spontaneous
  Country: MW (occurrence: None)
  Receive Date: 20141022
  Receipt Date: 20150512
  Transmission Date: 20150821
  Serious: Yes (Hospitalization, Other)
  Sender: FDA-Public Use
  Company Number: MW2014GSK005599

PATIENT
  Age: 12 Year
  Sex: Female
  Weight: 15 kg

DRUGS (5)
  1. COTRIMOXAZOLE [Suspect]
     Active Substance: SULFAMETHOXAZOLE\TRIMETHOPRIM
     Indication: HIV INFECTION
     Dates: start: 20140122
  2. EFAVIRENZ [Concomitant]
     Active Substance: EFAVIRENZ
  3. LAMIVUDINE (LAMIVUDINE) UNKNOWN [Suspect]
     Active Substance: LAMIVUDINE
     Indication: HIV INFECTION
     Dates: start: 20140214
  4. ZIDOVUDINE (ZIDOVUDINE) UNKNOWN) [Suspect]
     Active Substance: ZIDOVUDINE
     Indication: HIV INFECTION
     Dates: start: 20140214
  5. NEVIRAPINE (NEVIRAPINE) UNKNOWN [Concomitant]

REACTIONS (3)
  - Anaemia [None]
  - Pulmonary tuberculosis [None]
  - Malnutrition [None]

NARRATIVE: CASE EVENT DATE: 20140929
